FAERS Safety Report 9324928 (Version 1)
Quarter: 2013Q2

REPORT INFORMATION
  Report Type: Spontaneous
  Country: GB (occurrence: GB)
  Receive Date: 20130603
  Receipt Date: 20130603
  Transmission Date: 20140414
  Serious: Yes (Life-Threatening, Other)
  Sender: FDA-Public Use
  Company Number: GB-PFIZER INC-2013097294

PATIENT
  Age: 61 Year
  Sex: Female
  Weight: 65 kg

DRUGS (3)
  1. CHAMPIX [Suspect]
     Indication: SMOKING CESSATION THERAPY
     Dosage: UNK, 1X/DAY
     Route: 048
     Dates: start: 20121124, end: 20121207
  2. CHAMPIX [Suspect]
     Dosage: 1 MG, 2X/DAY
     Route: 048
     Dates: start: 20121207, end: 20130118
  3. CHAMPIX [Suspect]
     Dosage: 0.5 MG, 2X/DAY
     Dates: start: 20130118, end: 20130224

REACTIONS (7)
  - Burning sensation [Not Recovered/Not Resolved]
  - Headache [Not Recovered/Not Resolved]
  - Hypoaesthesia [Not Recovered/Not Resolved]
  - Depression [Not Recovered/Not Resolved]
  - Insomnia [Not Recovered/Not Resolved]
  - Palpitations [Not Recovered/Not Resolved]
  - Migraine [Unknown]
